FAERS Safety Report 21578002 (Version 6)
Quarter: 2023Q2

REPORT INFORMATION
  Report Type: Report from Study
  Country: US (occurrence: US)
  Receive Date: 20221110
  Receipt Date: 20230615
  Transmission Date: 20230721
  Serious: No
  Sender: FDA-Public Use
  Company Number: US-002147023-NVSC2022US251593

PATIENT
  Sex: Female

DRUGS (2)
  1. KESIMPTA [Suspect]
     Active Substance: OFATUMUMAB
     Indication: Product used for unknown indication
     Dosage: UNK
     Route: 065
  2. KESIMPTA [Suspect]
     Active Substance: OFATUMUMAB
     Dosage: UNK, QMO (EVERY 30 DAYS)
     Route: 065

REACTIONS (2)
  - Throat irritation [Unknown]
  - Hypersensitivity [Recovered/Resolved]
